FAERS Safety Report 6235317-1 (Version None)
Quarter: 2009Q2

REPORT INFORMATION
  Report Type: 
  Country: None (occurrence: None)
  Receive Date: 20090615
  Receipt Date: 20090608
  Transmission Date: 20091009
  Serious: Yes (Other)
  Sender: FDA-Public Use
  Company Number: 2009EU001677

PATIENT
  Sex: Male

DRUGS (10)
  1. PROGRAF [Suspect]
     Indication: RENAL TRANSPLANT
     Dosage: 1.5 MG, /D, ORAL
     Route: 048
     Dates: start: 20050101
  2. CELLCEPT [Suspect]
     Indication: RENAL TRANSPLANT
     Dosage: 1000 MG, /D, ORAL
     Route: 048
     Dates: start: 20050101
  3. ATACAND [Concomitant]
  4. NORVASC [Concomitant]
  5. ZOCOR [Concomitant]
  6. ALLOPURINOL [Concomitant]
  7. RAMIPRIL [Concomitant]
  8. FLUVOXAMIN (FLUVOXAMINE MALEATE) [Concomitant]
  9. NACOM (CARBIDOPA) [Concomitant]
  10. LEVOTHYROXINE SODIUM [Concomitant]

REACTIONS (6)
  - ASCITES [None]
  - DRUG TOXICITY [None]
  - HEPATIC FIBROSIS [None]
  - PANCYTOPENIA [None]
  - PRURITUS [None]
  - SPLENOMEGALY [None]
